FAERS Safety Report 6388250-9 (Version None)
Quarter: 2009Q4

REPORT INFORMATION
  Report Type: 
  Country: None (occurrence: None)
  Receive Date: 20091001
  Receipt Date: 20091001
  Transmission Date: 20100525
  Serious: No
  Sender: FDA-Public Use
  Company Number: None

PATIENT

DRUGS (2)
  1. GENTAMYCIN SULFATE [Suspect]
     Indication: OPHTHALMIA NEONATORUM
     Dosage: INTRAOCULAR
     Route: 031
  2. GENTAMYCIN SULFATE [Suspect]
     Indication: PROPHYLAXIS
     Dosage: INTRAOCULAR
     Route: 031

REACTIONS (3)
  - EYE DISCHARGE [None]
  - EYE SWELLING [None]
  - OCULAR HYPERAEMIA [None]
